FAERS Safety Report 20604835 (Version 1)
Quarter: 2022Q1

REPORT INFORMATION
  Report Type: Report from Study
  Country: AU (occurrence: AU)
  Receive Date: 20220317
  Receipt Date: 20220317
  Transmission Date: 20220424
  Serious: Yes (Hospitalization, Other)
  Sender: FDA-Public Use
  Company Number: AU-SUN PHARMACEUTICAL INDUSTRIES LTD-2022RR-329778

PATIENT
  Age: 51 Year
  Sex: Female
  Weight: 57 kg

DRUGS (7)
  1. VENLAFAXINE [Interacting]
     Active Substance: VENLAFAXINE HYDROCHLORIDE
     Indication: Product used for unknown indication
     Dosage: 1200 MILLIGRAM, UNK
     Route: 065
  2. HYDROCHLOROTHIAZIDE [Interacting]
     Active Substance: HYDROCHLOROTHIAZIDE
     Indication: Product used for unknown indication
     Dosage: UNK
     Route: 065
  3. TRAMADOL [Interacting]
     Active Substance: TRAMADOL
     Indication: Product used for unknown indication
     Dosage: 750 MILLIGRAM, UNK
     Route: 065
  4. POTASSIUM CHLORIDE [Interacting]
     Active Substance: POTASSIUM CHLORIDE
     Indication: Product used for unknown indication
     Dosage: UNK
     Route: 048
  5. AMILORIDE [Interacting]
     Active Substance: AMILORIDE
     Indication: Product used for unknown indication
     Dosage: UNK
     Route: 065
  6. THYROXINE [Interacting]
     Active Substance: LEVOTHYROXINE
     Indication: Product used for unknown indication
     Dosage: 1000 MICROGRAM, UNK
     Route: 065
  7. ALCOHOL [Interacting]
     Active Substance: ALCOHOL
     Indication: Product used for unknown indication
     Dosage: 7-10 SD
     Route: 065

REACTIONS (2)
  - Overdose [Unknown]
  - Drug interaction [Unknown]
